FAERS Safety Report 10709417 (Version 1)
Quarter: 2015Q1

REPORT INFORMATION
  Report Type: Spontaneous
  Country: US (occurrence: None)
  Receive Date: 20150113
  Receipt Date: 20150113
  Transmission Date: 20150721
  Serious: No
  Sender: FDA-Public Use
  Company Number: None

PATIENT
  Age: 57 Year
  Sex: Female
  Weight: 63.5 kg

DRUGS (1)
  1. INTRON A [Suspect]
     Active Substance: INTERFERON ALFA-2B
     Dosage: 16 MILLION IU, PATIENT TAKES INJECTIONS ON TUESDAY, THURSDAY, SATURDAY
     Dates: end: 20141227

REACTIONS (1)
  - Ear discomfort [None]

NARRATIVE: CASE EVENT DATE: 20141225
